FAERS Safety Report 6307786-X (Version None)
Quarter: 2009Q3

REPORT INFORMATION
  Report Type: 
  Country: None (occurrence: None)
  Receive Date: 20090812
  Receipt Date: 20090812
  Transmission Date: 20100115
  Serious: Yes (Hospitalization)
  Sender: FDA-Public Use
  Company Number: None

PATIENT
  Age: 67 Year
  Sex: Male
  Weight: 118 kg

DRUGS (1)
  1. TERBINAFINE 250MG NOVARTIS [Suspect]
     Indication: ONYCHOMYCOSIS
     Dosage: 250MG DAILY PO
     Route: 048
     Dates: start: 20090726, end: 20090808

REACTIONS (1)
  - PANCREATITIS [None]
